FAERS Safety Report 20731386 (Version 1)
Quarter: 2022Q2

REPORT INFORMATION
  Report Type: Report from Study
  Country: FR (occurrence: None)
  Receive Date: 20220420
  Receipt Date: 20220420
  Transmission Date: 20220721
  Serious: Yes (Other)
  Sender: FDA-Public Use
  Company Number: FR-Merck Healthcare KGaA-9314012

PATIENT
  Sex: Female

DRUGS (5)
  1. CHORIOGONADOTROPIN ALFA [Suspect]
     Active Substance: CHORIOGONADOTROPIN ALFA
     Indication: Ovulation induction
  2. GONAL-F [Suspect]
     Active Substance: FOLLITROPIN
     Indication: Product used for unknown indication
  3. GONADORELIN [Suspect]
     Active Substance: GONADORELIN
     Indication: Ovulation induction
  4. ORGALUTRAN [Suspect]
     Active Substance: GANIRELIX ACETATE
     Indication: Product used for unknown indication
  5. FOLLITROPIN\LUTEINIZING HORMONE [Suspect]
     Active Substance: FOLLITROPIN\LUTEINIZING HORMONE
     Indication: Product used for unknown indication

REACTIONS (2)
  - Hydrosalpinx [Unknown]
  - Ovarian hyperstimulation syndrome [Unknown]
